FAERS Safety Report 16985902 (Version 1)
Quarter: 2019Q4

REPORT INFORMATION
  Report Type: Spontaneous
  Country: US (occurrence: US)
  Receive Date: 20191031
  Receipt Date: 20191031
  Transmission Date: 20200122
  Serious: Yes (Hospitalization)
  Sender: FDA-Public Use
  Company Number: None

PATIENT
  Age: 47 Year
  Sex: Female
  Weight: 106.65 kg

DRUGS (1)
  1. ^FAT-BURNER^ INJECTION: B12, METHIONINE, INOSITOL, CHOLINE, L-CARNITIN [Suspect]
     Active Substance: AMINO ACIDS\VITAMINS
     Indication: WEIGHT DECREASED
     Dosage: ?          OTHER FREQUENCY:ONCE;?
     Route: 030
     Dates: start: 20190928, end: 20190928

REACTIONS (3)
  - Pain [None]
  - Injection site pain [None]
  - Pain in extremity [None]

NARRATIVE: CASE EVENT DATE: 20190928
